FAERS Safety Report 4596735-0 (Version None)
Quarter: 2005Q1

REPORT INFORMATION
  Report Type: 
  Country: None (occurrence: None)
  Receive Date: 20050228
  Receipt Date: 20050204
  Transmission Date: 20050727
  Serious: Yes (Other)
  Sender: FDA-Public Use
  Company Number: 2005024167

PATIENT
  Age: 65 Year
  Sex: Female
  Weight: 63.5036 kg

DRUGS (4)
  1. DETROL LA [Suspect]
     Indication: POLLAKIURIA
     Dosage: 4 MG (4 MG DAILY ) ORAL
     Route: 048
     Dates: start: 20040601
  2. FEXOFENADINE HYDROCHLORIDE [Suspect]
     Indication: HYPERSENSITIVITY
     Dosage: ORAL
     Route: 048
  3. CONJUGATED ESTROGEN [Concomitant]
  4. CLONAZEPAM [Concomitant]

REACTIONS (9)
  - ENURESIS [None]
  - FOOT FRACTURE [None]
  - GALLBLADDER DISORDER [None]
  - ILL-DEFINED DISORDER [None]
  - NOCTURIA [None]
  - ORAL INTAKE REDUCED [None]
  - POLLAKIURIA [None]
  - SWELLING FACE [None]
  - SWOLLEN TONGUE [None]
